FAERS Safety Report 5078232-1 (Version None)
Quarter: 2006Q3

REPORT INFORMATION
  Report Type: 
  Country: None (occurrence: None)
  Receive Date: 20060811
  Receipt Date: 20060804
  Transmission Date: 20061208
  Serious: Yes (Hospitalization)
  Sender: FDA-Public Use
  Company Number: DE-AVENTIS-200612308DE

PATIENT
  Age: 66 Year
  Sex: Female

DRUGS (3)
  1. DOCETAXEL [Suspect]
     Indication: BREAST CANCER
     Route: 042
     Dates: start: 20060707, end: 20060707
  2. EPIRUBICIN [Suspect]
     Indication: BREAST CANCER
     Route: 042
     Dates: start: 20060707, end: 20060707
  3. FORTECORTIN [Concomitant]
     Indication: CHEMOTHERAPY
     Route: 048
     Dates: start: 20060707, end: 20060707

REACTIONS (6)
  - ANAEMIA [None]
  - ASTHENIA [None]
  - DIARRHOEA [None]
  - HYPOCALCAEMIA [None]
  - NEUTROPENIA [None]
  - PYREXIA [None]
